FAERS Safety Report 6565536-6 (Version None)
Quarter: 2010Q1

REPORT INFORMATION
  Report Type: 
  Country: None (occurrence: None)
  Receive Date: 20100201
  Receipt Date: 20100121
  Transmission Date: 20100710
  Serious: Yes (Congenital Anomaly)
  Sender: FDA-Public Use
  Company Number: US-GILEAD-2010-0026617

PATIENT
  Sex: Male
  Weight: 2.081 kg

DRUGS (6)
  1. TRUVADA [Suspect]
     Indication: PROPHYLAXIS AGAINST HIV INFECTION
     Route: 064
     Dates: start: 20090410, end: 20090929
  2. KALETRA [Concomitant]
     Indication: PROPHYLAXIS AGAINST HIV INFECTION
  3. ATAZANAVIR [Concomitant]
  4. RITONAVIR [Concomitant]
  5. DARUNAVIR [Concomitant]
  6. ZIDOVUDINE [Concomitant]

REACTIONS (1)
  - SMALL FOR DATES BABY [None]
